APPROVED DRUG PRODUCT: CLINDAMYCIN PHOSPHATE AND BENZOYL PEROXIDE
Active Ingredient: BENZOYL PEROXIDE; CLINDAMYCIN PHOSPHATE
Strength: 5%;1.2%
Dosage Form/Route: GEL;TOPICAL
Application: A203688 | Product #001
Applicant: CHARTWELL RX SCIENCES LLC
Approved: Aug 25, 2016 | RLD: No | RS: No | Type: DISCN